FAERS Safety Report 17125035 (Version 1)
Quarter: 2019Q4

REPORT INFORMATION
  Report Type: Spontaneous
  Country: CA (occurrence: CA)
  Receive Date: 20191206
  Receipt Date: 20191206
  Transmission Date: 20200122
  Serious: Yes (Other)
  Sender: FDA-Public Use
  Company Number: CA-B.BRAUN MEDICAL INC.-2077567

PATIENT
  Age: 34 Year
  Sex: Female

DRUGS (2)
  1. SODIUM CHLORIDE INJECTION USP 0264-7800-09 [Suspect]
     Active Substance: SODIUM CHLORIDE
     Indication: SCLEROTHERAPY
     Route: 058
  2. SODIUM CHLORIDE. [Suspect]
     Active Substance: SODIUM CHLORIDE
     Route: 065

REACTIONS (5)
  - Injection site pain [None]
  - Skin ulcer [None]
  - Burning sensation [None]
  - Injection site swelling [None]
  - Paraesthesia [None]
